FAERS Safety Report 8874430 (Version 1)
Quarter: 2012Q4

REPORT INFORMATION
  Report Type: 
  Country: US (occurrence: US)
  Receive Date: 20121030
  Receipt Date: 20121030
  Transmission Date: 20130627
  Serious: Yes (Hospitalization, Other)
  Sender: FDA-Public Use
  Company Number: US-TEVA-366818USA

PATIENT
  Age: 75 Year
  Sex: Male
  Weight: 81.72 kg

DRUGS (10)
  1. AZILECT [Suspect]
     Indication: PARKINSON^S DISEASE
     Dosage: 1 Milligram Daily; 1 mg
     Route: 048
     Dates: start: 201208
  2. METOPROLOL [Concomitant]
     Indication: HYPERTENSION
     Dosage: 50 Milligram Daily; 50 mg
     Route: 048
  3. LOSARTAN [Concomitant]
     Indication: HYPERTENSION
     Dosage: 100 Milligram Daily; 100 mg
     Route: 048
  4. CLOPIDOGREL [Concomitant]
     Indication: ANTICOAGULANT THERAPY
     Dosage: 75 Milligram Daily; 75 mg
     Route: 048
  5. OMEPRAZOLE [Concomitant]
     Indication: GASTROOESOPHAGEAL REFLUX DISEASE
     Dosage: 40 Milligram Daily; 40 mg
     Route: 048
  6. NIFEDIPINE [Concomitant]
     Indication: HYPERTENSION
     Dosage: 30 Milligram Daily; 30 mg
     Route: 048
  7. HYDROCHLOROTHIAZIDE [Concomitant]
     Indication: HYPERTENSION
     Dosage: 25 Milligram Daily; 25 mg
     Route: 048
  8. PRAVASTATIN [Concomitant]
     Indication: HYPERLIPIDAEMIA
     Dosage: 40 Milligram Daily; 40 mg
     Route: 048
  9. ASPIRIN [Concomitant]
     Indication: ANTICOAGULANT THERAPY
     Dosage: 325 Milligram Daily; 325 mg
     Route: 048
  10. CARBIDOPA/LEVODOPAN [Concomitant]
     Indication: PARKINSON^S DISEASE
     Dosage: 75 mg/100 mg
     Route: 048

REACTIONS (4)
  - Cerebrovascular accident [Recovered/Resolved]
  - Blood pressure increased [Recovered/Resolved]
  - Asthenia [Recovered/Resolved]
  - Aphasia [Recovered/Resolved]
